FAERS Safety Report 15960544 (Version 1)
Quarter: 2019Q1

REPORT INFORMATION
  Report Type: Spontaneous
  Country: US (occurrence: US)
  Receive Date: 20190213
  Receipt Date: 20190213
  Transmission Date: 20190417
  Serious: Yes (Life-Threatening, Hospitalization, Disabling, Other)
  Sender: FDA-Public Use
  Company Number: None

PATIENT
  Age: 50 Year
  Sex: Male
  Weight: 105.75 kg

DRUGS (1)
  1. AVASTIN [Suspect]
     Active Substance: BEVACIZUMAB
     Indication: DIABETIC RETINOPATHY
     Dosage: ?          QUANTITY:1 INJECTION(S);OTHER FREQUENCY:IN OFFICE INJECTIO;?
     Route: 047
     Dates: end: 20190208

REACTIONS (5)
  - Eye infection [None]
  - Blindness unilateral [None]
  - Vitreous floaters [None]
  - Off label use [None]
  - Eye pain [None]

NARRATIVE: CASE EVENT DATE: 20190208
